FAERS Safety Report 13738831 (Version 1)
Quarter: 2017Q3

REPORT INFORMATION
  Report Type: Spontaneous
  Country: SE (occurrence: SE)
  Receive Date: 20170710
  Receipt Date: 20170710
  Transmission Date: 20171127
  Serious: Yes (Other)
  Sender: FDA-Public Use
  Company Number: SE-CELLTRION HEALTHCARE JAPAN K.K.-2017SE008964

PATIENT

DRUGS (1)
  1. INFLECTRA [Suspect]
     Active Substance: INFLIXIMAB-DYYB
     Indication: RHEUMATOID ARTHRITIS
     Dosage: 300 MG, EVERY 8TH WEEK
     Route: 065

REACTIONS (2)
  - Wound infection [Recovered/Resolved]
  - Basal cell carcinoma [Unknown]
